FAERS Safety Report 9265240 (Version 2)
Quarter: 2013Q2

REPORT INFORMATION
  Report Type: Spontaneous
  Country: US (occurrence: US)
  Receive Date: 20130501
  Receipt Date: 20130517
  Transmission Date: 20140414
  Serious: Yes (Other)
  Sender: FDA-Public Use
  Company Number: US-SANOFI-AVENTIS-2013SA043631

PATIENT
  Age: 55 Year
  Sex: Female
  Weight: 81.65 kg

DRUGS (19)
  1. AUBAGIO [Suspect]
     Indication: MULTIPLE SCLEROSIS
     Route: 048
     Dates: start: 20130207, end: 20130316
  2. AUBAGIO [Suspect]
     Indication: MULTIPLE SCLEROSIS
     Route: 048
     Dates: start: 20130207, end: 20130316
  3. CEPHALEXIN [Concomitant]
     Indication: POSTOPERATIVE CARE
     Dates: start: 20130424, end: 20130501
  4. HYDROCORTISONE ACETATE [Concomitant]
     Indication: EYE PAIN
     Dosage: FOR EYE PAIN STOPPED USING ON 26-APR-2013 BUT FOR MS PAIN CONTINUING?DOSE: 1-2 TAB AS NEEDED
     Dates: start: 20130423
  5. HYDROCORTISONE ACETATE [Concomitant]
     Indication: PAIN
     Dosage: FOR EYE PAIN STOPPED USING ON 26-APR-2013 BUT FOR MS PAIN CONTINUING?DOSE: 1-2 TAB AS NEEDED
     Dates: start: 20130423
  6. HYDROCHLOROTHIAZIDE/TRIAMTERENE [Concomitant]
     Indication: OEDEMA
     Dosage: 1-37.5 -25 TAB DAILY
  7. PREDNISONE [Concomitant]
     Indication: MULTIPLE SCLEROSIS
  8. BUPROPION HYDROCHLORIDE [Concomitant]
     Indication: DEPRESSION
  9. LORAZEPAM [Concomitant]
     Indication: ANXIETY
  10. VIGAMOX [Concomitant]
     Indication: POSTOPERATIVE CARE
     Dates: start: 20130423, end: 20130509
  11. VEXOL [Concomitant]
     Indication: POSTOPERATIVE CARE
     Dates: start: 20130423, end: 20130509
  12. ISOPTO HYOSCINE HYDROBROMIDE [Concomitant]
     Indication: POSTOPERATIVE CARE
     Dates: start: 20130423, end: 20130509
  13. ZOFRAN [Concomitant]
     Indication: POSTOPERATIVE CARE
     Dates: start: 20130423, end: 20130426
  14. VITAMIN D3 [Concomitant]
     Indication: MULTIPLE SCLEROSIS
     Dosage: 2-100 UNITS DAILY
     Dates: start: 20130506
  15. LYRICA [Concomitant]
     Indication: MULTIPLE SCLEROSIS
     Dosage: 150MG 2 TABLETS AT NIGHT
  16. CYMBALTA [Concomitant]
     Indication: MULTIPLE SCLEROSIS
  17. AMLODIPINE [Concomitant]
     Indication: BLOOD PRESSURE
     Dosage: 1-5 MG TAB IN THE MORNING
  18. PROVIGIL [Concomitant]
     Indication: MULTIPLE SCLEROSIS
     Dosage: 2-100 MG
  19. PRAVASTATIN [Concomitant]
     Indication: BLOOD CHOLESTEROL
     Dosage: 1-10 MG

REACTIONS (9)
  - Eye haemorrhage [Not Recovered/Not Resolved]
  - Blindness unilateral [Not Recovered/Not Resolved]
  - Rash erythematous [Recovered/Resolved with Sequelae]
  - Pruritus [Recovered/Resolved with Sequelae]
  - Fatigue [Unknown]
  - Pain in extremity [Unknown]
  - Contusion [Unknown]
  - Pallor [Unknown]
  - Nausea [Unknown]
